FAERS Safety Report 5682759-9 (Version None)
Quarter: 2008Q1

REPORT INFORMATION
  Report Type: 
  Country: None (occurrence: None)
  Receive Date: 20080326
  Receipt Date: 20080326
  Transmission Date: 20080703
  Serious: No
  Sender: FDA-Public Use
  Company Number: None

PATIENT
  Age: 46 Year
  Sex: Male
  Weight: 135 kg

DRUGS (4)
  1. AMIKACIN [Suspect]
     Indication: BACTERAEMIA
  2. COLISTIN SULFATE [Suspect]
  3. VANCOMYCIN [Suspect]
     Indication: PNEUMONIA
  4. ZOSYN [Suspect]

REACTIONS (19)
  - ACUTE PRERENAL FAILURE [None]
  - BACTERAEMIA [None]
  - CARDIAC FAILURE CONGESTIVE [None]
  - DRUG HYPERSENSITIVITY [None]
  - ENTEROCOCCAL INFECTION [None]
  - EOSINOPHIL COUNT INCREASED [None]
  - FLUID OVERLOAD [None]
  - GLOMERULONEPHRITIS [None]
  - HAEMATURIA [None]
  - HAEMODIALYSIS [None]
  - HYPERTENSION [None]
  - NEPHRITIS INTERSTITIAL [None]
  - PNEUMONIA STAPHYLOCOCCAL [None]
  - REFUSAL OF TREATMENT BY PATIENT [None]
  - RENAL DISORDER [None]
  - RENAL FAILURE ACUTE [None]
  - RESPIRATORY FAILURE [None]
  - STAPHYLOCOCCAL INFECTION [None]
  - URINARY TRACT OBSTRUCTION [None]
